FAERS Safety Report 7567038-7 (Version None)
Quarter: 2011Q2

REPORT INFORMATION
  Report Type: 
  Country: None (occurrence: None)
  Receive Date: 20110616
  Receipt Date: 20110601
  Transmission Date: 20111010
  Serious: Yes (Hospitalization)
  Sender: FDA-Public Use
  Company Number: DSJ-2011-10814

PATIENT
  Age: 81 Year
  Sex: Female

DRUGS (3)
  1. EPHEDRA TEAS (EPHEDRA SPP.) (EPHEDRA SPP.) [Suspect]
     Indication: PRODUCT USED FOR UNKNOWN INDICATION
     Dosage: 3 DOSAGE FORMS (1 DOSAGE FORMS, 3 IN 1 D)
  2. ARIMIDEX [Suspect]
     Indication: PRODUCT USED FOR UNKNOWN INDICATION
  3. OLMETEC (OLMESARTAN MEDOXOMIL) (TABLET) (OLMESARTAN MEDOXOMIL) [Suspect]
     Indication: HYPERTENSION
     Dosage: 40 MG, PER ORAL
     Route: 048
     Dates: start: 20100501

REACTIONS (1)
  - INTERSTITIAL LUNG DISEASE [None]
